FAERS Safety Report 8357190-8 (Version None)
Quarter: 2012Q2

REPORT INFORMATION
  Report Type: 
  Country: None (occurrence: None)
  Receive Date: 20120514
  Receipt Date: 20120507
  Transmission Date: 20120825
  Serious: Yes (Hospitalization)
  Sender: FDA-Public Use
  Company Number: US-BAYER-2011-052215

PATIENT
  Age: 28 Year
  Sex: Female
  Weight: 107.94 kg

DRUGS (7)
  1. NORCO [Concomitant]
     Indication: PAIN
     Dosage: 325/5 MG TABLET EVERY 4-6 HOURS AS NEEDED
     Dates: start: 20090720
  2. YAZ [Suspect]
     Dosage: UNK
     Dates: start: 20070101, end: 20090701
  3. SPIRONOLACTONE [Concomitant]
     Dosage: UNK
     Dates: start: 20070101
  4. BROMOCRIPTINE MESYLATE [Concomitant]
     Dosage: 2.5 TWO TABLETS, BID
     Dates: start: 20090720
  5. KETOCONAZOLE [Concomitant]
     Dosage: UNK
     Dates: start: 20090720
  6. PARLODEL [Concomitant]
     Dosage: UNK
  7. ALDACTONE [Concomitant]
     Dosage: 50 MG, 1/2 TABLET, OM
     Route: 048
     Dates: start: 20090720

REACTIONS (13)
  - CHOLECYSTITIS INFECTIVE [None]
  - SCAR [None]
  - EMOTIONAL DISTRESS [None]
  - INJURY [None]
  - PAIN [None]
  - DYSPEPSIA [None]
  - CONSTIPATION [None]
  - DIARRHOEA [None]
  - CHOLECYSTECTOMY [None]
  - ANXIETY [None]
  - FLATULENCE [None]
  - DEPRESSION [None]
  - ABDOMINAL DISTENSION [None]
